FAERS Safety Report 11457255 (Version 1)
Quarter: 2015Q3

REPORT INFORMATION
  Report Type: Spontaneous
  Country: US (occurrence: None)
  Receive Date: 20150903
  Receipt Date: 20150903
  Transmission Date: 20151125
  Serious: No
  Sender: FDA-Public Use
  Company Number: None

PATIENT
  Age: 79 Year
  Sex: Male

DRUGS (13)
  1. ATENOLOL. [Concomitant]
     Active Substance: ATENOLOL
  2. FISH OIL [Concomitant]
     Active Substance: FISH OIL
  3. LUPRON [Suspect]
     Active Substance: LEUPROLIDE ACETATE
     Indication: PROSTATE CANCER
     Dosage: EVERY 6 MONTHS
     Route: 030
  4. PREDNISONE. [Concomitant]
     Active Substance: PREDNISONE
  5. JANUMET [Concomitant]
     Active Substance: METFORMIN HYDROCHLORIDE\SITAGLIPTIN PHOSPHATE
  6. ZYTIGA [Suspect]
     Active Substance: ABIRATERONE ACETATE
     Indication: PROSTATE CANCER
     Dosage: 4 TABLETS
     Route: 048
     Dates: start: 20141224, end: 20150902
  7. OCUVITE [Concomitant]
     Active Substance: VITAMINS
  8. MULTIVITAMINS [Concomitant]
     Active Substance: VITAMINS
  9. GLUCOSAMINE [Concomitant]
     Active Substance: GLUCOSAMINE
  10. IBUPROFEN. [Concomitant]
     Active Substance: IBUPROFEN
  11. OSCAL [Concomitant]
     Active Substance: CALCIUM CARBONATE
  12. ALEVE [Concomitant]
     Active Substance: NAPROXEN SODIUM
  13. ZOMETA [Concomitant]
     Active Substance: ZOLEDRONIC ACID

REACTIONS (4)
  - Decreased appetite [None]
  - Hot flush [None]
  - Weight decreased [None]
  - Blood glucose increased [None]

NARRATIVE: CASE EVENT DATE: 20150902
